FAERS Safety Report 18717145 (Version 1)
Quarter: 2021Q1

REPORT INFORMATION
  Report Type: Spontaneous
  Country: US (occurrence: US)
  Receive Date: 20210108
  Receipt Date: 20210108
  Transmission Date: 20210419
  Serious: No
  Sender: FDA-Public Use
  Company Number: None

PATIENT

DRUGS (1)
  1. CISPLATIN. [Suspect]
     Active Substance: CISPLATIN

REACTIONS (4)
  - Product contamination [None]
  - Product container seal issue [None]
  - Accidental exposure to product [None]
  - Product dose omission in error [None]

NARRATIVE: CASE EVENT DATE: 20210106
